FAERS Safety Report 25381310 (Version 1)
Quarter: 2025Q2

REPORT INFORMATION
  Report Type: Spontaneous
  Country: EE (occurrence: EE)
  Receive Date: 20250530
  Receipt Date: 20250530
  Transmission Date: 20250716
  Serious: Yes (Other)
  Sender: PURDUE
  Company Number: EE-NAPPMUNDI-GBR-2025-0125927

PATIENT
  Age: 30 Year

DRUGS (2)
  1. OXYCONTIN [Interacting]
     Active Substance: OXYCODONE HYDROCHLORIDE
     Indication: Product used for unknown indication
     Route: 065
  2. PREGABALIN [Interacting]
     Active Substance: PREGABALIN
     Indication: Product used for unknown indication
     Route: 065

REACTIONS (4)
  - Intentional self-injury [Unknown]
  - Tongue disorder [Unknown]
  - Gait disturbance [Unknown]
  - Labelled drug-drug interaction issue [Unknown]
